FAERS Safety Report 5614134-7 (Version None)
Quarter: 2008Q1

REPORT INFORMATION
  Report Type: 
  Country: None (occurrence: None)
  Receive Date: 20080205
  Receipt Date: 20080124
  Transmission Date: 20080703
  Serious: Yes (Death, Other)
  Sender: FDA-Public Use
  Company Number: US-PFIZER INC-2008007763

PATIENT
  Age: 17 Year
  Sex: Male

DRUGS (4)
  1. XANAX [Suspect]
     Route: 045
  2. OXYMORPHONE HCL [Suspect]
     Route: 045
     Dates: end: 20071215
  3. ALCOHOL [Suspect]
  4. TETRAHYDROCANNABINOL [Suspect]

REACTIONS (2)
  - ACCIDENTAL OVERDOSE [None]
  - LOSS OF CONSCIOUSNESS [None]
